FAERS Safety Report 4457140-0 (Version None)
Quarter: 2004Q3

REPORT INFORMATION
  Report Type: 
  Country: None (occurrence: None)
  Receive Date: 20040922
  Receipt Date: 20040908
  Transmission Date: 20050211
  Serious: Yes (Death, Hospitalization)
  Sender: FDA-Public Use
  Company Number: 2004-BP-07008BP

PATIENT
  Age: 45 Year
  Sex: Female
  Weight: 80.7 kg

DRUGS (4)
  1. MIRAPEX [Suspect]
     Indication: RESTLESS LEGS SYNDROME
     Dosage: 0.5 MG (0.25 MG, 2 Q HS), PO
     Route: 048
     Dates: start: 20040625
  2. ZYPREXA [Concomitant]
  3. CELEXA [Concomitant]
  4. STRATTERA [Concomitant]

REACTIONS (2)
  - CARDIAC ARREST [None]
  - CEREBRAL ISCHAEMIA [None]
